FAERS Safety Report 5804487-9 (Version None)
Quarter: 2008Q3

REPORT INFORMATION
  Report Type: 
  Country: None (occurrence: None)
  Receive Date: 20080709
  Receipt Date: 20080627
  Transmission Date: 20090109
  Serious: Yes (Hospitalization)
  Sender: FDA-Public Use
  Company Number: B0527370A

PATIENT
  Age: 72 Year
  Sex: Female

DRUGS (9)
  1. AUGMENTIN '125' [Suspect]
     Indication: SIGMOIDITIS
     Route: 048
     Dates: start: 20070914, end: 20070924
  2. DEPAKENE [Suspect]
     Indication: EPILEPSY
     Route: 048
  3. DEBRIDAT [Suspect]
     Indication: SIGMOIDITIS
     Route: 048
     Dates: start: 20070914, end: 20070924
  4. TIORFAN [Suspect]
     Indication: DRUG USE FOR UNKNOWN INDICATION
     Route: 048
  5. DOMPERIDONE [Suspect]
     Indication: DRUG USE FOR UNKNOWN INDICATION
     Route: 048
  6. ULTRA LEVURE [Suspect]
     Indication: SIGMOIDITIS
     Route: 048
     Dates: start: 20070914, end: 20070924
  7. ZYPREXA [Suspect]
     Route: 048
  8. IMOVANE [Suspect]
     Indication: DRUG USE FOR UNKNOWN INDICATION
     Route: 048
  9. DIPROSONE [Suspect]
     Route: 065

REACTIONS (8)
  - DERMATITIS [None]
  - LYMPHATIC DISORDER [None]
  - OEDEMA PERIPHERAL [None]
  - PRURITUS [None]
  - RASH MACULO-PAPULAR [None]
  - SKIN LESION [None]
  - TOXIC SKIN ERUPTION [None]
  - VENOUS INSUFFICIENCY [None]
